FAERS Safety Report 4314905-3 (Version None)
Quarter: 2004Q1

REPORT INFORMATION
  Report Type: 
  Country: None (occurrence: None)
  Receive Date: 20040308
  Receipt Date: 20040225
  Transmission Date: 20041129
  Serious: Yes (Life-Threatening)
  Sender: FDA-Public Use
  Company Number: 2004200943DE

PATIENT

DRUGS (1)
  1. BEXTRA [Suspect]
     Dosage: ORAL

REACTIONS (1)
  - CARDIAC FAILURE [None]
